FAERS Safety Report 18528493 (Version 2)
Quarter: 2021Q1

REPORT INFORMATION
  Report Type: Spontaneous
  Country: JP (occurrence: JP)
  Receive Date: 20201120
  Receipt Date: 20210111
  Transmission Date: 20210419
  Serious: Yes (Other)
  Sender: FDA-Public Use
  Company Number: JP-009507513-2011JPN001743J

PATIENT
  Age: 8 Decade
  Sex: Male

DRUGS (2)
  1. AXITINIB [Concomitant]
     Active Substance: AXITINIB
     Indication: RENAL CELL CARCINOMA
     Dosage: 5 MILLIGRAM, BID
     Route: 048
     Dates: start: 202008, end: 202011
  2. KEYTRUDA [Suspect]
     Active Substance: PEMBROLIZUMAB
     Indication: RENAL CELL CARCINOMA
     Dosage: 200 MILLIGRAM, Q3W
     Route: 041
     Dates: start: 202008, end: 202011

REACTIONS (2)
  - Immune-mediated hepatic disorder [Recovering/Resolving]
  - Palmar-plantar erythrodysaesthesia syndrome [Unknown]

NARRATIVE: CASE EVENT DATE: 2020
